FAERS Safety Report 16098743 (Version 1)
Quarter: 2019Q1

REPORT INFORMATION
  Report Type: Spontaneous
  Country: US (occurrence: US)
  Receive Date: 20190321
  Receipt Date: 20190321
  Transmission Date: 20190418
  Serious: No
  Sender: FDA-Public Use
  Company Number: US-ASTRAZENECA-2019SE41524

PATIENT
  Age: 24943 Day
  Sex: Female
  Weight: 63.5 kg

DRUGS (7)
  1. FARXIGA [Suspect]
     Active Substance: DAPAGLIFLOZIN PROPANEDIOL
     Indication: DIABETES MELLITUS
     Route: 048
     Dates: start: 2018
  2. OMEPRAZOLE. [Suspect]
     Active Substance: OMEPRAZOLE
     Indication: GASTROOESOPHAGEAL REFLUX DISEASE
     Route: 048
  3. GLIPIZIDE. [Concomitant]
     Active Substance: GLIPIZIDE
     Indication: DIABETES MELLITUS
     Route: 048
  4. ATORVASTATIN [Concomitant]
     Active Substance: ATORVASTATIN
     Indication: BLOOD CHOLESTEROL
     Route: 048
  5. OMEPRAZOLE. [Suspect]
     Active Substance: OMEPRAZOLE
     Indication: IRRITABLE BOWEL SYNDROME
     Route: 048
  6. ASPIRIN. [Concomitant]
     Active Substance: ASPIRIN
     Indication: ILL-DEFINED DISORDER
     Route: 048
  7. MULTIVITAMINS OTC [Concomitant]
     Indication: ILL-DEFINED DISORDER
     Dosage: DAILY
     Route: 048

REACTIONS (9)
  - Blister [Not Recovered/Not Resolved]
  - Dysuria [Recovering/Resolving]
  - Vulvovaginal burning sensation [Recovering/Resolving]
  - Discharge [Unknown]
  - Adnexa uteri pain [Not Recovered/Not Resolved]
  - Vulvovaginal swelling [Recovering/Resolving]
  - Vulvovaginal rash [Unknown]
  - Fungal infection [Recovering/Resolving]
  - Pyrexia [Recovered/Resolved]

NARRATIVE: CASE EVENT DATE: 20190308
